FAERS Safety Report 18523770 (Version 1)
Quarter: 2020Q4

REPORT INFORMATION
  Report Type: Spontaneous
  Country: US (occurrence: US)
  Receive Date: 20201119
  Receipt Date: 20201119
  Transmission Date: 20210114
  Serious: No
  Sender: FDA-Public Use
  Company Number: US-UNITED THERAPEUTICS-UNT-2020-017768

PATIENT
  Sex: Female

DRUGS (2)
  1. REMODULIN [Suspect]
     Active Substance: TREPROSTINIL
     Indication: PULMONARY ARTERIAL HYPERTENSION
     Dosage: UNK, CONTINUING (EVERY OTHER DAY)
     Route: 041
     Dates: start: 20190101
  2. REMODULIN [Suspect]
     Active Substance: TREPROSTINIL
     Dosage: UNK UNK, CONTINUING (EVERY OTHER DAY, RIGHT NOW DOSE WAS 36 NANOGRAMS)
     Route: 041
     Dates: start: 2020

REACTIONS (12)
  - Inappropriate schedule of product administration [Unknown]
  - Diarrhoea [Unknown]
  - Weight decreased [Not Recovered/Not Resolved]
  - Dermatitis contact [Unknown]
  - Myalgia [Unknown]
  - Influenza like illness [Unknown]
  - Pain in jaw [Unknown]
  - Headache [Unknown]
  - Pain in extremity [Unknown]
  - Asthenia [Unknown]
  - Arthralgia [Unknown]
  - Fatigue [Unknown]

NARRATIVE: CASE EVENT DATE: 2019
